FAERS Safety Report 5264637-2 (Version None)
Quarter: 2007Q1

REPORT INFORMATION
  Report Type: 
  Country: None (occurrence: None)
  Receive Date: 20061117
  Receipt Date: 20051118
  Transmission Date: 20070707
  Serious: Yes (Other)
  Sender: FDA-Public Use
  Company Number: US-JNJFOC-20051000568

PATIENT
  Age: 14 Year
  Sex: Male
  Weight: 85.2762 kg

DRUGS (1)
  1. LEVAQUIN [Suspect]
     Indication: PHARYNGITIS STREPTOCOCCAL
     Dosage: , 1 IN 1 DAY
     Dates: start: 20051001, end: 20051001

REACTIONS (3)
  - DIZZINESS [None]
  - HYPOAESTHESIA [None]
  - LOSS OF CONSCIOUSNESS [None]
